FAERS Safety Report 15241313 (Version 1)
Quarter: 2018Q3

REPORT INFORMATION
  Report Type: Spontaneous
  Country: US (occurrence: US)
  Receive Date: 20180805
  Receipt Date: 20180805
  Transmission Date: 20181010
  Serious: Yes (Other)
  Sender: FDA-Public Use
  Company Number: US-AUROBINDO-AUR-APL-2018-039323

PATIENT
  Age: 69 Year
  Sex: Male

DRUGS (2)
  1. PREDNISONE. [Suspect]
     Active Substance: PREDNISONE
     Indication: IMMUNOSUPPRESSION
     Dosage: UNK
     Route: 065
  2. TACROLIMUS. [Suspect]
     Active Substance: TACROLIMUS
     Indication: IMMUNOSUPPRESSION
     Dosage: UNK
     Route: 065

REACTIONS (7)
  - Vitritis [Recovered/Resolved]
  - Trichosporon infection [Recovered/Resolved]
  - Corneal lesion [Recovered/Resolved]
  - Visual impairment [Recovered/Resolved]
  - Endophthalmitis [Recovered/Resolved]
  - Cataract [Recovered/Resolved]
  - Macular oedema [Recovered/Resolved]
